FAERS Safety Report 6378751-1 (Version None)
Quarter: 2009Q3

REPORT INFORMATION
  Report Type: 
  Country: None (occurrence: None)
  Receive Date: 20090928
  Receipt Date: 20090831
  Transmission Date: 20100115
  Serious: Yes (Hospitalization)
  Sender: FDA-Public Use
  Company Number: NZ-ASTRAZENECA-2009SE14377

PATIENT
  Age: 24390 Day
  Sex: Female

DRUGS (1)
  1. OMEPRAZOLE [Suspect]
     Indication: OESOPHAGITIS
     Route: 048
     Dates: start: 20010801, end: 20020123

REACTIONS (4)
  - NAUSEA [None]
  - POLYDIPSIA [None]
  - RED BLOOD CELL SEDIMENTATION RATE INCREASED [None]
  - TUBULOINTERSTITIAL NEPHRITIS [None]
